FAERS Safety Report 14861608 (Version 3)
Quarter: 2018Q4

REPORT INFORMATION
  Report Type: Spontaneous
  Country: US (occurrence: US)
  Receive Date: 20180508
  Receipt Date: 20181123
  Transmission Date: 20190204
  Serious: No
  Sender: FDA-Public Use
  Company Number: US-PFIZER INC-2018187871

PATIENT
  Age: 67 Year
  Sex: Female
  Weight: 61.22 kg

DRUGS (4)
  1. DOCETAXEL. [Suspect]
     Active Substance: DOCETAXEL
     Indication: BREAST CANCER METASTATIC
     Dosage: UNK, CYCLIC (EVERY 3 WEEKS, WITH 4 CYCLES)
     Dates: start: 200012, end: 200104
  2. TAXOTERE [Suspect]
     Active Substance: DOCETAXEL
     Indication: BREAST CANCER METASTATIC
     Dosage: UNK, CYCLIC (EVERY 3 WEEKS, WITH 4 CYCLES)
     Dates: start: 200012, end: 200104
  3. TRAMADOL. [Concomitant]
     Active Substance: TRAMADOL
     Dosage: UNK
     Dates: start: 1996
  4. NAPROXEN. [Concomitant]
     Active Substance: NAPROXEN
     Dosage: UNK
     Dates: start: 1996

REACTIONS (5)
  - Madarosis [Not Recovered/Not Resolved]
  - Hair texture abnormal [Unknown]
  - Hair colour changes [Unknown]
  - Alopecia [Not Recovered/Not Resolved]
  - Hair disorder [Unknown]

NARRATIVE: CASE EVENT DATE: 200110
